FAERS Safety Report 5300836-9 (Version None)
Quarter: 2007Q2

REPORT INFORMATION
  Report Type: 
  Country: None (occurrence: None)
  Receive Date: 20070411
  Receipt Date: 20070405
  Transmission Date: 20071010
  Serious: Yes (Hospitalization)
  Sender: FDA-Public Use
  Company Number: 149041USA

PATIENT
  Age: 42 Year
  Sex: Female

DRUGS (20)
  1. COPAXONE [Suspect]
     Indication: MULTIPLE SCLEROSIS
     Dosage: (20 MG), SUBCUTANEOUS
     Route: 058
     Dates: start: 20060524
  2. LORAZEPAM [Concomitant]
  3. CARBAMAZEPINE [Concomitant]
  4. LOSARTAN POSTASSIUM [Concomitant]
  5. RISPERIDONE [Concomitant]
  6. BENZTROPINE MESYLATE [Concomitant]
  7. HALOPERIDOL [Concomitant]
  8. IBUPROFEN [Concomitant]
  9. ALUMINUM HYDROXIDE GEL [Concomitant]
  10. MAGNESIUM HYDROXIDE TAB [Concomitant]
  11. TRAZODONE HCL [Concomitant]
  12. GABAPENTIN [Concomitant]
  13. LOSARTAN POTASSIUM [Concomitant]
  14. METOPROLOL SUCCINATE [Concomitant]
  15. MODAFINIL [Concomitant]
  16. BUTALBITAL [Concomitant]
  17. TYLOX [Concomitant]
  18. ESCITALOPRAM OXALATE [Concomitant]
  19. CLONAZEPAM [Concomitant]
  20. CALCIUM CHLORIDE [Concomitant]

REACTIONS (9)
  - ABNORMAL BEHAVIOUR [None]
  - ELECTROENCEPHALOGRAM ABNORMAL [None]
  - FEAR [None]
  - HALLUCINATION, AUDITORY [None]
  - PARANOIA [None]
  - PERSECUTORY DELUSION [None]
  - POOR PERSONAL HYGIENE [None]
  - PSYCHOTIC DISORDER [None]
  - TREATMENT NONCOMPLIANCE [None]
